FAERS Safety Report 5097396-7 (Version None)
Quarter: 2006Q3

REPORT INFORMATION
  Report Type: 
  Country: None (occurrence: None)
  Receive Date: 20060906
  Receipt Date: 20060622
  Transmission Date: 20061208
  Serious: Yes (Life-Threatening, Disabling)
  Sender: FDA-Public Use
  Company Number: 2006PK01577

PATIENT
  Age: 778 Month
  Sex: Female
  Weight: 109 kg

DRUGS (2)
  1. ATACAND HCT [Suspect]
     Indication: HYPERTENSION
     Dosage: 16/12.5 MG QD
     Route: 048
     Dates: start: 20040101
  2. EUTHYROX [Concomitant]
     Indication: THYROID OPERATION
     Route: 048
     Dates: start: 19890101

REACTIONS (3)
  - HEPATIC ENZYME INCREASED [None]
  - HYPERGLYCAEMIA [None]
  - PRESBYOPIA [None]
